FAERS Safety Report 17654177 (Version 1)
Quarter: 2020Q2

REPORT INFORMATION
  Report Type: Spontaneous
  Country: IT (occurrence: IT)
  Receive Date: 20200410
  Receipt Date: 20200410
  Transmission Date: 20200713
  Serious: Yes (Hospitalization)
  Sender: FDA-Public Use
  Company Number: IT-TEVA-2020-IT-1222732

PATIENT
  Age: 64 Year
  Sex: Male

DRUGS (3)
  1. CARBOPLATIN. [Suspect]
     Active Substance: CARBOPLATIN
     Indication: NON-SMALL CELL LUNG CANCER
     Route: 065
  2. ERLOTINIB [Suspect]
     Active Substance: ERLOTINIB
     Indication: NON-SMALL CELL LUNG CANCER
     Route: 065
  3. DOCETAXEL. [Suspect]
     Active Substance: DOCETAXEL
     Indication: NON-SMALL CELL LUNG CANCER
     Route: 065

REACTIONS (7)
  - Tricuspid valve incompetence [Recovering/Resolving]
  - Mitral valve incompetence [Recovering/Resolving]
  - Cardiac failure chronic [Recovering/Resolving]
  - Coronary artery disease [Recovering/Resolving]
  - Bundle branch block left [Recovering/Resolving]
  - Myocardial fibrosis [Recovering/Resolving]
  - Congestive cardiomyopathy [Recovering/Resolving]

NARRATIVE: CASE EVENT DATE: 2009
